FAERS Safety Report 5420400-0 (Version None)
Quarter: 2007Q3

REPORT INFORMATION
  Report Type: 
  Country: None (occurrence: None)
  Receive Date: 20070816
  Receipt Date: 20070807
  Transmission Date: 20080115
  Serious: Yes (Hospitalization)
  Sender: FDA-Public Use
  Company Number: 2007BI015546

PATIENT
  Age: 41 Year
  Sex: Female

DRUGS (3)
  1. NATALIZUMAB [Suspect]
     Indication: MULTIPLE SCLEROSIS
     Dosage: 300 MG; QM; IV
     Route: 042
     Dates: start: 20070213
  2. LORAZEPAM [Concomitant]
  3. SOLU-MEDROL [Concomitant]

REACTIONS (2)
  - CONVULSION [None]
  - PARTIAL SEIZURES [None]
